FAERS Safety Report 21204951 (Version 1)
Quarter: 2022Q3

REPORT INFORMATION
  Report Type: Spontaneous
  Country: CN (occurrence: CN)
  Receive Date: 20220812
  Receipt Date: 20220812
  Transmission Date: 20221027
  Serious: Yes (Hospitalization)
  Sender: FDA-Public Use
  Company Number: CN-BAYER-2022A111464

PATIENT
  Age: 7 Year
  Sex: Male
  Weight: 19.5 kg

DRUGS (1)
  1. XARELTO [Suspect]
     Active Substance: RIVAROXABAN
     Indication: Postoperative thrombosis
     Dosage: 5 MG, BID
     Route: 048
     Dates: start: 20220729, end: 20220731

REACTIONS (3)
  - Hepatic enzyme increased [Recovering/Resolving]
  - Off label use [Unknown]
  - Contraindicated product administered [Unknown]

NARRATIVE: CASE EVENT DATE: 20220729
